FAERS Safety Report 14008707 (Version 1)
Quarter: 2017Q3

REPORT INFORMATION
  Report Type: Spontaneous
  Country: FR (occurrence: FR)
  Receive Date: 20170925
  Receipt Date: 20170925
  Transmission Date: 20171128
  Serious: Yes (Hospitalization)
  Sender: FDA-Public Use
  Company Number: FR-PFIZER INC-2017404191

PATIENT
  Age: 17 Year
  Sex: Female

DRUGS (4)
  1. XARELTO [Suspect]
     Active Substance: RIVAROXABAN
     Dosage: 21 DF, SINGLE
     Route: 048
     Dates: start: 20170828, end: 20170828
  2. ALPRAZOLAM. [Suspect]
     Active Substance: ALPRAZOLAM
     Dosage: 30 DF, SINGLE
     Route: 048
     Dates: start: 20170828, end: 20170828
  3. IBUPROFEN. [Suspect]
     Active Substance: IBUPROFEN
     Dosage: 1 DF, SINGLE
     Route: 048
     Dates: start: 20170828, end: 20170828
  4. EFFEXOR LP [Suspect]
     Active Substance: VENLAFAXINE HYDROCHLORIDE
     Dosage: 30 DF, SINGLE
     Route: 048
     Dates: start: 20170828, end: 20170828

REACTIONS (2)
  - Altered state of consciousness [Recovered/Resolved]
  - Poisoning deliberate [Unknown]

NARRATIVE: CASE EVENT DATE: 20170829
